FAERS Safety Report 5109764-5 (Version None)
Quarter: 2006Q3

REPORT INFORMATION
  Report Type: 
  Country: None (occurrence: None)
  Receive Date: 20060915
  Receipt Date: 20060908
  Transmission Date: 20061208
  Serious: Yes (Other)
  Sender: FDA-Public Use
  Company Number: 2006109988

PATIENT
  Sex: 0

DRUGS (3)
  1. ZOLOFT [Suspect]
     Indication: DRUG USE FOR UNKNOWN INDICATION
     Dosage: ORAL
     Route: 048
  2. TETRAMIDE (MIANSERIN HYDROCHLORIDE) [Concomitant]
  3. SEROQUEL [Concomitant]

REACTIONS (1)
  - CONVULSION [None]
